FAERS Safety Report 24744257 (Version 1)
Quarter: 2024Q4

REPORT INFORMATION
  Report Type: Spontaneous
  Country: US (occurrence: US)
  Receive Date: 20241217
  Receipt Date: 20241217
  Transmission Date: 20250114
  Serious: Yes (Other)
  Sender: OTSUKA
  Company Number: US-OTSUKA-2024_033416

PATIENT

DRUGS (1)
  1. ABILIFY MAINTENA [Suspect]
     Active Substance: ARIPIPRAZOLE
     Indication: Product used for unknown indication
     Dosage: 400 MG, QM
     Route: 065

REACTIONS (3)
  - Hallucination, auditory [Recovered/Resolved]
  - Feeling abnormal [Unknown]
  - Pain [Recovered/Resolved]
